FAERS Safety Report 11439594 (Version 1)
Quarter: 2015Q3

REPORT INFORMATION
  Report Type: Spontaneous
  Country: US (occurrence: US)
  Receive Date: 20150901
  Receipt Date: 20150901
  Transmission Date: 20151125
  Serious: No
  Sender: FDA-Public Use
  Company Number: US-ROCHE-1031545

PATIENT
  Sex: Male
  Weight: 69.92 kg

DRUGS (6)
  1. PEGASYS [Suspect]
     Active Substance: PEGINTERFERON ALFA-2A
     Indication: CHRONIC HEPATITIS C
     Route: 058
     Dates: start: 20110904, end: 20120420
  2. RIBASPHERE [Suspect]
     Active Substance: RIBAVIRIN
     Indication: CHRONIC HEPATITIS C
     Dosage: DIVIDED DOSES
     Route: 048
     Dates: start: 20110904, end: 20120420
  3. RIBASPHERE [Suspect]
     Active Substance: RIBAVIRIN
     Route: 065
     Dates: start: 20111003
  4. RIBASPHERE [Suspect]
     Active Substance: RIBAVIRIN
     Dosage: WEEK 27
     Route: 065
  5. TELAPREVIR [Suspect]
     Active Substance: TELAPREVIR
     Route: 065
     Dates: end: 20111126
  6. TELAPREVIR [Suspect]
     Active Substance: TELAPREVIR
     Indication: CHRONIC HEPATITIS C
     Route: 065
     Dates: start: 20110904, end: 20111126

REACTIONS (12)
  - Platelet count abnormal [Unknown]
  - Liver function test abnormal [Recovered/Resolved]
  - Neutrophil count decreased [Unknown]
  - Weight decreased [Unknown]
  - Arthralgia [Not Recovered/Not Resolved]
  - Memory impairment [Not Recovered/Not Resolved]
  - Anaemia [Unknown]
  - Feeling abnormal [Not Recovered/Not Resolved]
  - Dry skin [Unknown]
  - Fatigue [Unknown]
  - Pruritus [Unknown]
  - Alanine aminotransferase decreased [Unknown]
